FAERS Safety Report 9284540 (Version 2)
Quarter: 2013Q2

REPORT INFORMATION
  Report Type: Report from Study
  Country: KP (occurrence: KP)
  Receive Date: 20130511
  Receipt Date: 20130516
  Transmission Date: 20140414
  Serious: Yes (Hospitalization)
  Sender: FDA-Public Use
  Company Number: KP-ROCHE-1223328

PATIENT
  Age: 64 Year
  Sex: Female
  Weight: 45.1 kg

DRUGS (10)
  1. PEG-INTERFERON ALFA 2A [Suspect]
     Indication: CHRONIC HEPATITIS C
     Route: 058
     Dates: start: 20130312
  2. PEG-INTERFERON ALFA 2A [Suspect]
     Route: 058
     Dates: start: 20130507
  3. RIBAVIRIN [Suspect]
     Indication: CHRONIC HEPATITIS C
     Dosage: DAILY
     Route: 048
     Dates: start: 20130312
  4. RIBAVIRIN [Suspect]
     Dosage: DAILY
     Route: 048
     Dates: start: 20130423
  5. ACETAMINOPHEN [Concomitant]
     Indication: PAIN
     Dosage: DAILY
     Route: 048
     Dates: start: 20130312
  6. ALBIS [Concomitant]
     Indication: GASTRITIS
     Dosage: 2 TAB DAILY
     Route: 048
     Dates: start: 20130409
  7. METOCLOPRAMIDE HYDROCHLORIDE [Concomitant]
     Indication: GASTRITIS
     Dosage: DAILY
     Route: 048
     Dates: start: 20130409
  8. SILYMARIN [Concomitant]
     Indication: CHRONIC HEPATITIS
     Dosage: DAILY
     Route: 048
     Dates: start: 20130423, end: 20130427
  9. IRSOGLADINE [Concomitant]
     Indication: GASTRITIS
     Dosage: DAILY
     Route: 048
     Dates: start: 20130426, end: 20130506
  10. ZOLPIDEM [Concomitant]
     Indication: INSOMNIA
     Dosage: DAILY
     Route: 048
     Dates: start: 20130507

REACTIONS (4)
  - Nausea [Not Recovered/Not Resolved]
  - Decreased appetite [Not Recovered/Not Resolved]
  - Asthenia [Not Recovered/Not Resolved]
  - Pancytopenia [Not Recovered/Not Resolved]
